FAERS Safety Report 4654942-2 (Version None)
Quarter: 2005Q2

REPORT INFORMATION
  Report Type: 
  Country: None (occurrence: None)
  Receive Date: 20050506
  Receipt Date: 20050110
  Transmission Date: 20051028
  Serious: Yes (Hospitalization)
  Sender: FDA-Public Use
  Company Number: US-MERCK-0501USA00955

PATIENT
  Age: 84 Year
  Sex: Male
  Weight: 82 kg

DRUGS (20)
  1. VIOXX [Suspect]
     Indication: POLYMYALGIA RHEUMATICA
     Route: 048
     Dates: start: 20000128, end: 20000224
  2. VIOXX [Suspect]
     Route: 048
     Dates: start: 20040305, end: 20040518
  3. VIOXX [Suspect]
     Route: 048
     Dates: start: 20000410
  4. VIOXX [Suspect]
     Route: 048
     Dates: start: 20031201
  5. VIOXX [Suspect]
     Route: 048
     Dates: end: 20040930
  6. VIOXX [Suspect]
     Indication: ARTHRITIS
     Route: 048
     Dates: start: 20000128, end: 20000224
  7. VIOXX [Suspect]
     Route: 048
     Dates: start: 20040305, end: 20040518
  8. VIOXX [Suspect]
     Route: 048
     Dates: start: 20000410
  9. VIOXX [Suspect]
     Route: 048
     Dates: start: 20031201
  10. VIOXX [Suspect]
     Route: 048
     Dates: end: 20040930
  11. DIABETA [Concomitant]
     Route: 048
  12. VITAMINS (UNSPECIFIED) [Concomitant]
     Route: 065
  13. TRAVATAN [Concomitant]
     Indication: GLAUCOMA
     Route: 001
  14. ALPHAGAN [Concomitant]
     Indication: GLAUCOMA
     Route: 001
  15. TEARS NATURALE [Concomitant]
     Indication: GLAUCOMA
     Route: 001
  16. LEVOBUNOLOL HYDROCHLORIDE [Concomitant]
     Indication: GLAUCOMA
     Route: 001
  17. JOINT ADVANTAGE [Concomitant]
     Route: 065
  18. CYANOCOBALAMIN AND PYRIDOXINE [Concomitant]
     Route: 065
  19. PREDNISONE [Concomitant]
     Route: 065
     Dates: start: 19990901
  20. ALLOPURINOL [Concomitant]
     Route: 065

REACTIONS (19)
  - ACUTE MYOCARDIAL INFARCTION [None]
  - ANAEMIA [None]
  - ANGER [None]
  - ANXIETY [None]
  - BACK PAIN [None]
  - BACTERIURIA [None]
  - CATARACT [None]
  - CONFUSIONAL STATE [None]
  - CORONARY ARTERY DISEASE [None]
  - CORONARY ARTERY OCCLUSION [None]
  - DEPRESSION [None]
  - EJECTION FRACTION DECREASED [None]
  - EMOTIONAL DISTRESS [None]
  - FEAR [None]
  - GASTROINTESTINAL HAEMORRHAGE [None]
  - GLAUCOMA [None]
  - HYPERTENSION [None]
  - INJURY [None]
  - TENOSYNOVITIS [None]
